FAERS Safety Report 24576225 (Version 1)
Quarter: 2024Q4

REPORT INFORMATION
  Report Type: Spontaneous
  Country: US (occurrence: None)
  Receive Date: 20241103
  Receipt Date: 20241103
  Transmission Date: 20250115
  Serious: Yes (Other)
  Sender: Public
  Company Number: None

PATIENT
  Age: 79 Year
  Sex: Male
  Weight: 111.6 kg

DRUGS (1)
  1. HERBALS\MITRAGYNINE [Suspect]
     Active Substance: HERBALS\MITRAGYNINE

REACTIONS (6)
  - Feeling abnormal [None]
  - Physical product label issue [None]
  - Dizziness [None]
  - Therapy non-responder [None]
  - Lethargy [None]
  - Nonspecific reaction [None]

NARRATIVE: CASE EVENT DATE: 20241103
